FAERS Safety Report 12336885 (Version 1)
Quarter: 2016Q2

REPORT INFORMATION
  Report Type: Spontaneous
  Country: US (occurrence: US)
  Receive Date: 20160505
  Receipt Date: 20160505
  Transmission Date: 20160815
  Serious: No
  Sender: FDA-Public Use
  Company Number: US-MISSION PHARMACAL COMPANY-1051474

PATIENT
  Sex: Male

DRUGS (2)
  1. POTASSIUM CITRATE. [Concomitant]
     Active Substance: POTASSIUM CITRATE
     Route: 065
  2. THIOLA [Suspect]
     Active Substance: TIOPRONIN
     Route: 065

REACTIONS (4)
  - Back pain [Unknown]
  - Nephrolithiasis [Unknown]
  - Calculus urinary [Unknown]
  - Lymphadenopathy [Unknown]
